FAERS Safety Report 6256494-2 (Version None)
Quarter: 2009Q3

REPORT INFORMATION
  Report Type: 
  Country: None (occurrence: None)
  Receive Date: 20090706
  Receipt Date: 20090421
  Transmission Date: 20100115
  Serious: No
  Sender: FDA-Public Use
  Company Number: US-BAYER-200919041NA

PATIENT
  Age: 30 Year
  Sex: Female
  Weight: 133 kg

DRUGS (5)
  1. MIRENA [Suspect]
     Indication: CONTRACEPTION
     Dosage: CONTINUOUS DELIVERY
     Route: 015
     Dates: start: 20090421, end: 20090421
  2. ALBUTEROL [Concomitant]
  3. NEBULIZER [Concomitant]
  4. DRISDOL [Concomitant]
  5. VITAMIN TAB [Concomitant]

REACTIONS (1)
  - INTRA-UTERINE CONTRACEPTIVE DEVICE EXPELLED [None]
